FAERS Safety Report 4486177-0 (Version None)
Quarter: 2004Q4

REPORT INFORMATION
  Report Type: 
  Country: None (occurrence: None)
  Receive Date: 20041026
  Receipt Date: 20041021
  Transmission Date: 20050328
  Serious: Yes (Life-Threatening, Disabling)
  Sender: FDA-Public Use
  Company Number: US-MERCK-0410USA03460

PATIENT
  Age: 70 Year
  Sex: Female

DRUGS (7)
  1. VIOXX [Suspect]
     Indication: PAIN MANAGEMENT
     Route: 048
  2. NITRO [Concomitant]
     Route: 065
  3. ELAVIL [Concomitant]
     Route: 065
  4. XANAX [Concomitant]
     Route: 065
  5. ZANTAC [Concomitant]
     Route: 065
  6. PRINIVIL [Concomitant]
     Route: 065
  7. CARTIA (ASPIRIN) [Concomitant]
     Route: 065

REACTIONS (3)
  - ATRIAL FIBRILLATION [None]
  - HAEMATEMESIS [None]
  - PAIN [None]
